FAERS Safety Report 9224213 (Version 1)
Quarter: 2013Q1

REPORT INFORMATION
  Report Type: Spontaneous
  Country: US (occurrence: None)
  Receive Date: 20120914
  Receipt Date: 20120914
  Transmission Date: 20140127
  Serious: Yes (Other)
  Sender: FDA-Public Use
  Company Number: JPI-P-016751

PATIENT
  Age: 62 Year
  Sex: Female

DRUGS (2)
  1. XYREM [Suspect]
     Indication: SLEEP DISORDER
     Route: 048
     Dates: start: 2010, end: 2011
  2. XYREM [Suspect]
     Indication: INSOMNIA
     Route: 048
     Dates: start: 2010, end: 2011

REACTIONS (8)
  - Foot fracture [None]
  - Fall [None]
  - Somnambulism [None]
  - Joint dislocation [None]
  - Tendon injury [None]
  - Laceration [None]
  - Scar [None]
  - Facial bones fracture [None]
